FAERS Safety Report 5563925-X (Version None)
Quarter: 2007Q4

REPORT INFORMATION
  Report Type: 
  Country: None (occurrence: None)
  Receive Date: 20071217
  Receipt Date: 20070925
  Transmission Date: 20080405
  Serious: No
  Sender: FDA-Public Use
  Company Number: US-ASTRAZENECA-2007UW22482

PATIENT
  Age: 78 Year
  Sex: Female
  Weight: 102.1 kg

DRUGS (6)
  1. CRESTOR [Suspect]
     Indication: BLOOD CHOLESTEROL INCREASED
     Route: 048
  2. POTASSIUM SUPPLEMENT [Concomitant]
  3. MAXZIDE [Concomitant]
  4. GLYBURIDE [Concomitant]
  5. METOPROLOL [Concomitant]
  6. DIOVAN [Concomitant]

REACTIONS (1)
  - SENSATION OF HEAVINESS [None]
